FAERS Safety Report 7674727-2 (Version None)
Quarter: 2011Q3

REPORT INFORMATION
  Report Type: 
  Country: None (occurrence: None)
  Receive Date: 20110810
  Receipt Date: 20110118
  Transmission Date: 20111222
  Serious: Yes (Hospitalization)
  Sender: FDA-Public Use
  Company Number: US-GLAXOSMITHKLINE-A0924004A

PATIENT
  Age: 59 Year
  Sex: Male

DRUGS (1)
  1. BACTROBAN [Suspect]
     Indication: STAPHYLOCOCCAL INFECTION
     Route: 061
     Dates: start: 20020601

REACTIONS (2)
  - IMPAIRED HEALING [None]
  - INJURY [None]
